FAERS Safety Report 24147446 (Version 1)
Quarter: 2024Q3

REPORT INFORMATION
  Report Type: Report from Study
  Country: IN (occurrence: IN)
  Receive Date: 20240729
  Receipt Date: 20240729
  Transmission Date: 20241016
  Serious: Yes (Other)
  Sender: ROCHE
  Company Number: IN-ROCHE-10000007942

PATIENT
  Age: 66 Year
  Sex: Male
  Weight: 73.0 kg

DRUGS (1)
  1. TECENTRIQ [Suspect]
     Active Substance: ATEZOLIZUMAB
     Indication: Hepatocellular carcinoma
     Route: 042
     Dates: start: 20231116

REACTIONS (4)
  - Malaise [Unknown]
  - Pyrexia [Unknown]
  - Platelet count decreased [Unknown]
  - Febrile neutropenia [Unknown]
